FAERS Safety Report 15843626 (Version 1)
Quarter: 2019Q1

REPORT INFORMATION
  Report Type: Spontaneous
  Country: US (occurrence: US)
  Receive Date: 20190118
  Receipt Date: 20190118
  Transmission Date: 20190417
  Serious: No
  Sender: FDA-Public Use
  Company Number: US-ASTRAZENECA-2018SF69585

PATIENT
  Age: 24823 Day
  Sex: Female
  Weight: 56.7 kg

DRUGS (1)
  1. PULMICORT TURBUHALER [Suspect]
     Active Substance: BUDESONIDE
     Indication: COUGH
     Route: 055
     Dates: start: 20181023

REACTIONS (5)
  - Off label use [Unknown]
  - Cough [Unknown]
  - Product use in unapproved indication [Unknown]
  - Device issue [Unknown]
  - Intentional device misuse [Unknown]

NARRATIVE: CASE EVENT DATE: 20181023
